FAERS Safety Report 12194000 (Version 1)
Quarter: 2016Q1

REPORT INFORMATION
  Report Type: Spontaneous
  Country: US (occurrence: None)
  Receive Date: 20160318
  Receipt Date: 20160318
  Transmission Date: 20160526
  Serious: No
  Sender: FDA-Public Use
  Company Number: None

PATIENT
  Age: 62 Year
  Sex: Female

DRUGS (3)
  1. TOUJEO [Suspect]
     Active Substance: INSULIN GLARGINE
  2. METFORMIN [Suspect]
     Active Substance: METFORMIN HYDROCHLORIDE
  3. LUPALLID [Suspect]
     Active Substance: UNSPECIFIED INGREDIENT

REACTIONS (4)
  - Glycosylated haemoglobin increased [None]
  - Incorrect dose administered by device [None]
  - Device issue [None]
  - Therapy change [None]
